FAERS Safety Report 6358418-6 (Version None)
Quarter: 2009Q3

REPORT INFORMATION
  Report Type: 
  Country: None (occurrence: None)
  Receive Date: 20090911
  Receipt Date: 20090902
  Transmission Date: 20100115
  Serious: Yes (Hospitalization)
  Sender: FDA-Public Use
  Company Number: 230207K09DEU

PATIENT
  Age: 37 Year
  Sex: Female
  Weight: 58 kg

DRUGS (1)
  1. REBIF [Suspect]
     Indication: MULTIPLE SCLEROSIS
     Dosage: 22, 3 IN 1 WEEKS, SUBCUTANEOUS
     Route: 058
     Dates: start: 19980101

REACTIONS (1)
  - CERVIX CARCINOMA STAGE 0 [None]
